FAERS Safety Report 8778244 (Version 2)
Quarter: 2013Q4

REPORT INFORMATION
  Report Type: Report from Study
  Country: JP (occurrence: JP)
  Receive Date: 20120911
  Receipt Date: 20131107
  Transmission Date: 20140711
  Serious: Yes (Hospitalization, Other)
  Sender: FDA-Public Use
  Company Number: JP-009507513-1207JPN001462

PATIENT
  Age: 64 Year
  Sex: Male
  Weight: 60 kg

DRUGS (17)
  1. PEGINTRON [Suspect]
     Indication: HEPATITIS C
     Dosage: 100 MICROGRAM, QW
     Route: 058
     Dates: start: 20120514, end: 20120717
  2. REBETOL [Suspect]
     Indication: HEPATITIS C
     Dosage: 800 MG, QD
     Route: 048
     Dates: start: 20120514, end: 20120610
  3. REBETOL [Suspect]
     Dosage: 600MG/2 DAY
     Route: 048
     Dates: start: 20120611, end: 20120611
  4. REBETOL [Suspect]
     Dosage: 800MG/2 DAYS
     Route: 048
     Dates: start: 20120612, end: 20120612
  5. REBETOL [Suspect]
     Dosage: 600 MG, QD
     Route: 048
     Dates: start: 20120613, end: 20120617
  6. REBETOL [Suspect]
     Dosage: 400MG/2 DAYS
     Route: 048
     Dates: start: 20120618, end: 20120623
  7. REBETOL [Suspect]
     Dosage: 600MG/2 DAYS
     Route: 048
     Dates: start: 20120619, end: 20120624
  8. REBETOL [Suspect]
     Dosage: 400 MG, QD
     Route: 048
     Dates: start: 20120625, end: 20120701
  9. REBETOL [Suspect]
     Dosage: 400MG/2DAY
     Route: 048
     Dates: start: 20120702, end: 20120708
  10. REBETOL [Suspect]
     Dosage: 200MG/2DAY
     Route: 048
     Dates: start: 20120703, end: 20120708
  11. REBETOL [Suspect]
     Dosage: 400 MG, QD
     Route: 048
     Dates: start: 20120717, end: 20120723
  12. TELAVIC [Suspect]
     Indication: HEPATITIS C
     Dosage: 2250 MG,, QD
     Route: 048
     Dates: start: 20120514, end: 20120612
  13. TELAVIC [Suspect]
     Dosage: 1500 MG, QD
     Route: 048
     Dates: start: 20120613, end: 20120617
  14. TELAVIC [Suspect]
     Dosage: 750 MG, QD
     Route: 048
     Dates: start: 20120618, end: 20120708
  15. TELAVIC [Suspect]
     Dosage: 1500 MG, QD
     Route: 048
     Dates: start: 20120717, end: 20120723
  16. ALLEGRA [Concomitant]
     Indication: PROPHYLAXIS
     Dosage: 60 MG, BID
     Route: 048
     Dates: start: 20120514, end: 20120723
  17. RIKKUNSHI-TO [Concomitant]
     Indication: PROPHYLAXIS
     Dosage: 7.5 G, QD
     Route: 048
     Dates: start: 20120514, end: 20120723

REACTIONS (5)
  - Hyperuricaemia [Recovered/Resolved]
  - Haemoglobin decreased [Not Recovered/Not Resolved]
  - Blood creatinine increased [Recovering/Resolving]
  - Diarrhoea [Recovering/Resolving]
  - Retinopathy [Not Recovered/Not Resolved]
